FAERS Safety Report 16962273 (Version 1)
Quarter: 2019Q4

REPORT INFORMATION
  Report Type: Spontaneous
  Country: US (occurrence: US)
  Receive Date: 20191025
  Receipt Date: 20191025
  Transmission Date: 20200122
  Serious: No
  Sender: FDA-Public Use
  Company Number: US-ASTRAZENECA-2019SF38814

PATIENT
  Age: 65 Year
  Sex: Female

DRUGS (6)
  1. CRESTOR [Suspect]
     Active Substance: ROSUVASTATIN CALCIUM
     Indication: HIGH DENSITY LIPOPROTEIN ABNORMAL
     Route: 048
  2. CRESTOR [Suspect]
     Active Substance: ROSUVASTATIN CALCIUM
     Indication: HIGH DENSITY LIPOPROTEIN ABNORMAL
     Route: 048
  3. CRESTOR [Suspect]
     Active Substance: ROSUVASTATIN CALCIUM
     Indication: HIGH DENSITY LIPOPROTEIN ABNORMAL
     Route: 048
  4. LIPITOR [Concomitant]
     Active Substance: ATORVASTATIN CALCIUM
  5. PRAVACHOL [Concomitant]
     Active Substance: PRAVASTATIN SODIUM
  6. CRESTOR [Suspect]
     Active Substance: ROSUVASTATIN CALCIUM
     Indication: HIGH DENSITY LIPOPROTEIN ABNORMAL
     Route: 048

REACTIONS (3)
  - Musculoskeletal stiffness [Unknown]
  - Sinusitis [Unknown]
  - Myalgia [Unknown]
